FAERS Safety Report 21248407 (Version 3)
Quarter: 2022Q4

REPORT INFORMATION
  Report Type: Spontaneous
  Country: US (occurrence: US)
  Receive Date: 20220824
  Receipt Date: 20221129
  Transmission Date: 20230113
  Serious: Yes (Other)
  Sender: FDA-Public Use
  Company Number: US-BRISTOL-MYERS SQUIBB COMPANY-2022-091455

PATIENT
  Age: 51 Year
  Sex: Female

DRUGS (2)
  1. ZEPOSIA [Suspect]
     Active Substance: OZANIMOD HYDROCHLORIDE
     Indication: Multiple sclerosis
     Route: 048
     Dates: start: 20220408
  2. ZEPOSIA [Suspect]
     Active Substance: OZANIMOD HYDROCHLORIDE
     Route: 048
     Dates: start: 20220426

REACTIONS (7)
  - Multiple sclerosis [Unknown]
  - Diarrhoea [Unknown]
  - Abdominal pain upper [Unknown]
  - Fall [Unknown]
  - Limb injury [Unknown]
  - Nausea [Unknown]
  - Joint injury [Unknown]

NARRATIVE: CASE EVENT DATE: 20220801
